FAERS Safety Report 9375449 (Version 1)
Quarter: 2013Q2

REPORT INFORMATION
  Report Type: Spontaneous
  Country: JP (occurrence: JP)
  Receive Date: 20130628
  Receipt Date: 20130628
  Transmission Date: 20140414
  Serious: Yes (Hospitalization, Other)
  Sender: FDA-Public Use
  Company Number: JP-GLAXOSMITHKLINE-B0583696A

PATIENT
  Age: 0 Day
  Sex: Male

DRUGS (4)
  1. PAXIL [Suspect]
     Indication: PRODUCT USED FOR UNKNOWN INDICATION
     Route: 064
  2. ALPRAZOLAM [Suspect]
     Indication: PRODUCT USED FOR UNKNOWN INDICATION
     Route: 064
  3. VICCILLIN [Concomitant]
     Indication: NEONATAL ASPIRATION
     Dosage: 280MG PER DAY
     Dates: start: 20090616, end: 20090621
  4. TOBRACIN [Concomitant]
     Indication: NEONATAL ASPIRATION
     Dosage: 10MG PER DAY
     Route: 065
     Dates: start: 20090616, end: 20090621

REACTIONS (3)
  - Drug withdrawal syndrome neonatal [Not Recovered/Not Resolved]
  - Foetal exposure during pregnancy [Unknown]
  - Irritability [Recovering/Resolving]
